FAERS Safety Report 9329257 (Version 1)
Quarter: 2013Q2

REPORT INFORMATION
  Report Type: Spontaneous
  Country: US (occurrence: US)
  Receive Date: 20130604
  Receipt Date: 20130604
  Transmission Date: 20140414
  Serious: No
  Sender: FDA-Public Use
  Company Number: US-SANOFI-AVENTIS-2012SA081314

PATIENT
  Age: 77 Year
  Sex: Female

DRUGS (3)
  1. LANTUS SOLOSTAR [Suspect]
     Indication: TYPE 2 DIABETES MELLITUS
     Dosage: DOSE:10 UNIT(S)
     Route: 058
     Dates: start: 20121027, end: 20121027
  2. SOLOSTAR [Suspect]
     Indication: TYPE 2 DIABETES MELLITUS
     Dates: start: 20121027, end: 20121027
  3. GLIMEPIRIDE [Concomitant]
     Indication: TYPE 2 DIABETES MELLITUS

REACTIONS (6)
  - Neuralgia [Unknown]
  - Paraesthesia [Unknown]
  - Myalgia [Unknown]
  - Insomnia [Unknown]
  - Headache [Unknown]
  - Blood glucose increased [Not Recovered/Not Resolved]
